FAERS Safety Report 10257950 (Version 1)
Quarter: 2014Q2

REPORT INFORMATION
  Report Type: Spontaneous
  Country: US (occurrence: US)
  Receive Date: 20140625
  Receipt Date: 20140625
  Transmission Date: 20141212
  Serious: No
  Sender: FDA-Public Use
  Company Number: US-PFIZER INC-2014171208

PATIENT
  Sex: Female

DRUGS (3)
  1. CLINDAMYCIN PHOSPHATE [Suspect]
     Indication: DRY SKIN
     Dosage: UNK
  2. CLINDAMYCIN PHOSPHATE [Suspect]
     Indication: INGROWN HAIR
  3. CLINDAMYCIN PHOSPHATE [Suspect]
     Indication: FURUNCLE

REACTIONS (3)
  - Product quality issue [Unknown]
  - Dry skin [Unknown]
  - Pruritus [Unknown]
